FAERS Safety Report 6133282-9 (Version None)
Quarter: 2009Q1

REPORT INFORMATION
  Report Type: 
  Country: None (occurrence: None)
  Receive Date: 20090324
  Receipt Date: 20090324
  Transmission Date: 20090719
  Serious: Yes (Other)
  Sender: FDA-Public Use
  Company Number: None

PATIENT
  Age: 67 Year
  Sex: Male

DRUGS (9)
  1. PHENYTOIN SODIUM CAP [Suspect]
     Indication: CONVULSION
     Dosage: 3 CAPSULES AT BEDTIME AND 2 CAPSULES IN THE MORNING ORALLY
     Route: 048
     Dates: start: 20090112
  2. ZOCOR [Concomitant]
  3. LASIX [Concomitant]
  4. LEVEMIR [Concomitant]
  5. INSULIN [Concomitant]
  6. GEODON [Concomitant]
  7. ATIVAN [Concomitant]
  8. SINGULAIR [Concomitant]
  9. LISINOPRIL [Concomitant]

REACTIONS (1)
  - ANTICONVULSANT DRUG LEVEL ABNORMAL [None]
